FAERS Safety Report 24644893 (Version 1)
Quarter: 2024Q4

REPORT INFORMATION
  Report Type: Spontaneous
  Country: US (occurrence: US)
  Receive Date: 20241121
  Receipt Date: 20241121
  Transmission Date: 20250115
  Serious: Yes (Hospitalization, Other)
  Sender: HIKMA
  Company Number: US-HIKMA PHARMACEUTICALS USA INC.-US-H14001-24-10662

PATIENT
  Age: 33 Year
  Sex: Female

DRUGS (1)
  1. TESTOSTERONE [Suspect]
     Active Substance: TESTOSTERONE
     Indication: Hormone therapy
     Dosage: 200 MILLIGRAM PER GRAM, QOW, TESTOSTERONE 200 MG/ML EVERY 2 WEEKS
     Route: 065
     Dates: start: 2009

REACTIONS (5)
  - Idiopathic intracranial hypertension [Recovering/Resolving]
  - Papilloedema [Recovering/Resolving]
  - Blood testosterone free increased [Unknown]
  - Cerebrospinal fluid leakage [Unknown]
  - Blood testosterone increased [Unknown]
